FAERS Safety Report 23838981 (Version 1)
Quarter: 2024Q2

REPORT INFORMATION
  Report Type: Report from Study
  Country: US (occurrence: US)
  Receive Date: 20240509
  Receipt Date: 20240509
  Transmission Date: 20240715
  Serious: Yes (Other)
  Sender: FDA-Public Use
  Company Number: US-BRIAN CONNER SVP QUALITY AND CHIEF COMPLIANCE OFFICER-2024XER00220

PATIENT
  Sex: Female
  Weight: 59.41 kg

DRUGS (7)
  1. KEVEYIS [Suspect]
     Active Substance: DICHLORPHENAMIDE
     Indication: Paralysis
     Dosage: UNK
     Route: 048
     Dates: start: 20170428
  2. KEVEYIS [Suspect]
     Active Substance: DICHLORPHENAMIDE
     Dosage: 1.5 TABLETS (75 MG), 2X/DAY
     Route: 048
     Dates: start: 20231117
  3. POTASSIUM [Suspect]
     Active Substance: POTASSIUM
  4. CANNABIDIOL [Suspect]
     Active Substance: CANNABIDIOL
  5. HERBALS\WITHANIA SOMNIFERA ROOT [Suspect]
     Active Substance: HERBALS\WITHANIA SOMNIFERA ROOT
  6. UNSPECIFIED INGREDIENT [Suspect]
     Active Substance: UNSPECIFIED INGREDIENT
  7. LAMOTRIGINE [Concomitant]
     Active Substance: LAMOTRIGINE

REACTIONS (19)
  - Retinal degeneration [Unknown]
  - Renal impairment [Unknown]
  - Stress [Unknown]
  - Heart rate decreased [Unknown]
  - Hypotension [Unknown]
  - Abdominal discomfort [Unknown]
  - Polydipsia [Not Recovered/Not Resolved]
  - Pollakiuria [Not Recovered/Not Resolved]
  - Blood glucose increased [Unknown]
  - Weight increased [Unknown]
  - Dehydration [Unknown]
  - Body height decreased [Unknown]
  - Insomnia [Unknown]
  - Blood pressure increased [Unknown]
  - Heart rate increased [Unknown]
  - Crying [Unknown]
  - Fatigue [Not Recovered/Not Resolved]
  - Paralysis [Unknown]
  - Diarrhoea [Unknown]
